FAERS Safety Report 7262335-7 (Version None)
Quarter: 2011Q1

REPORT INFORMATION
  Report Type: 
  Country: None (occurrence: None)
  Receive Date: 20110130
  Receipt Date: 20101129
  Transmission Date: 20110831
  Serious: No
  Sender: FDA-Public Use
  Company Number: US-ABBOTT-10P-163-0688038-00

PATIENT
  Age: 45 Year
  Sex: Female

DRUGS (13)
  1. HUMIRA [Suspect]
     Indication: CROHN'S DISEASE
     Dates: start: 20101028
  2. FOLIC ACID [Concomitant]
     Indication: PRODUCT USED FOR UNKNOWN INDICATION
  3. FISH OIL [Concomitant]
     Indication: PRODUCT USED FOR UNKNOWN INDICATION
  4. CALCIUM WITH D [Concomitant]
     Indication: PRODUCT USED FOR UNKNOWN INDICATION
  5. VITAMIN B-12 [Concomitant]
     Indication: CROHN'S DISEASE
  6. FLAX OIL [Concomitant]
     Indication: PRODUCT USED FOR UNKNOWN INDICATION
  7. PENTASA [Concomitant]
     Indication: CROHN'S DISEASE
  8. LOEGESTROL [Concomitant]
     Indication: CONTRACEPTION
  9. 6 MP 50 [Concomitant]
     Indication: CROHN'S DISEASE
  10. CITALOPRAM [Concomitant]
     Indication: PRODUCT USED FOR UNKNOWN INDICATION
  11. ELAVIL [Concomitant]
     Indication: ANXIETY
  12. HYDROCHLOROTHIAZIDE [Concomitant]
     Indication: HYPERTENSION
  13. FLONASE [Concomitant]
     Indication: HYPERSENSITIVITY
     Dosage: 2 PUFFS EACH NOSTRIL

REACTIONS (1)
  - DIARRHOEA [None]
